FAERS Safety Report 8959661 (Version 2)
Quarter: 2013Q2

REPORT INFORMATION
  Report Type: Spontaneous
  Country: US (occurrence: US)
  Receive Date: 20121212
  Receipt Date: 20130524
  Transmission Date: 20140414
  Serious: No
  Sender: FDA-Public Use
  Company Number: US-009507513-1212USA003110

PATIENT
  Sex: Female

DRUGS (1)
  1. NUVARING [Suspect]
     Dosage: 0.015 ETONOGESTREL/0.12 MG ETHINYL ESTRADIOL,EVERY THREE WEEKS VAGINALLY AS DIRECTED
     Route: 067
     Dates: start: 201012

REACTIONS (2)
  - Device expulsion [Unknown]
  - Product quality issue [Unknown]
